FAERS Safety Report 10033797 (Version 1)
Quarter: 2014Q1

REPORT INFORMATION
  Report Type: Spontaneous
  Country: US (occurrence: US)
  Receive Date: 20140325
  Receipt Date: 20140325
  Transmission Date: 20141002
  Serious: No
  Sender: FDA-Public Use
  Company Number: US-BIOGENIDEC-2014BI025159

PATIENT
  Age: 62 Year
  Sex: Female

DRUGS (4)
  1. TECFIDERA [Suspect]
     Indication: MULTIPLE SCLEROSIS
     Route: 048
     Dates: start: 20140311
  2. HYDROCODONE-ACETAMINOPHEN [Concomitant]
  3. GABAPENTIN [Concomitant]
  4. DIAZEPAM [Concomitant]

REACTIONS (2)
  - Decreased appetite [Unknown]
  - Diarrhoea [Unknown]
